FAERS Safety Report 10283908 (Version 5)
Quarter: 2015Q2

REPORT INFORMATION
  Report Type: Not Available
  Country: PT (occurrence: PT)
  Receive Date: 20140708
  Receipt Date: 20150518
  Transmission Date: 20150821
  Serious: Yes (Disabling)
  Sender: FDA-Public Use
  Company Number: PT-BEH-2014043672

PATIENT
  Sex: Male

DRUGS (5)
  1. PRIVIGEN [Suspect]
     Active Substance: HUMAN IMMUNOGLOBULIN G
  2. PRIVIGEN [Suspect]
     Active Substance: HUMAN IMMUNOGLOBULIN G
     Indication: MYASTHENIA GRAVIS
     Route: 042
     Dates: start: 20140313
  3. PRIVIGEN [Suspect]
     Active Substance: HUMAN IMMUNOGLOBULIN G
  4. PRIVIGEN [Suspect]
     Active Substance: HUMAN IMMUNOGLOBULIN G
  5. PRIVIGEN [Suspect]
     Active Substance: HUMAN IMMUNOGLOBULIN G

REACTIONS (5)
  - Product use issue [Unknown]
  - Myasthenia gravis [Not Recovered/Not Resolved]
  - Condition aggravated [Recovered/Resolved]
  - Product quality issue [Not Recovered/Not Resolved]
  - Drug ineffective for unapproved indication [Not Recovered/Not Resolved]
